FAERS Safety Report 25300493 (Version 1)
Quarter: 2025Q2

REPORT INFORMATION
  Report Type: Spontaneous
  Country: DE (occurrence: DE)
  Receive Date: 20250512
  Receipt Date: 20250512
  Transmission Date: 20250716
  Serious: Yes (Hospitalization, Other)
  Sender: MYLAN
  Company Number: DE-MYLANLABS-2025M1038769

PATIENT
  Sex: Male

DRUGS (2)
  1. ZELDOX [Suspect]
     Active Substance: ZIPRASIDONE
     Indication: Product used for unknown indication
  2. VALPROATE [Concomitant]
     Active Substance: VALPROIC ACID

REACTIONS (3)
  - Schizophrenia [Unknown]
  - Panic attack [Unknown]
  - Delusion [Unknown]
